FAERS Safety Report 6907347-5 (Version None)
Quarter: 2010Q3

REPORT INFORMATION
  Report Type: 
  Country: None (occurrence: None)
  Receive Date: 20100802
  Receipt Date: 20100719
  Transmission Date: 20110219
  Serious: Yes (Death, Hospitalization, Other)
  Sender: FDA-Public Use
  Company Number: WAES1006USA01306

PATIENT
  Age: 67 Year
  Sex: Male
  Weight: 50.8029 kg

DRUGS (15)
  1. ZOCOR [Suspect]
     Indication: ACUTE CORONARY SYNDROME
     Dosage: 40 MG/DAILY/PO
     Route: 048
     Dates: start: 20091204, end: 20100602
  2. PLACEBO (UNSPECIFIED) 1 TAB [Suspect]
     Indication: ACUTE CORONARY SYNDROME
     Dosage: 1 TAB/DAILY/PO
     Route: 048
     Dates: start: 20091204, end: 20100602
  3. TAB PLACEBO (UNSPECIFIED) 1 TAB [Suspect]
     Indication: ACUTE CORONARY SYNDROME
     Dosage: 1 TAB/DAILY/PO
     Route: 048
     Dates: start: 20091204, end: 20100602
  4. ASPIRIN [Concomitant]
  5. ENOXAPARIN SODIUM [Concomitant]
  6. BROMOPRIDE [Concomitant]
  7. CAPTOPRIL [Concomitant]
  8. CEPHALOTHIN SODIUM [Concomitant]
  9. CLOPIDOGREL BISULFATE [Concomitant]
  10. DIPYRONE [Concomitant]
  11. INSULIN [Concomitant]
  12. MORPHINE [Concomitant]
  13. OMEPRAZOLE [Concomitant]
  14. PROPRANOLOL HYDROCHLORIDE [Concomitant]
  15. SIMVASTATIN [Concomitant]

REACTIONS (4)
  - ABDOMINAL DISTENSION [None]
  - GASTRIC CANCER [None]
  - LEUKOCYTOSIS [None]
  - PNEUMONIA [None]
